FAERS Safety Report 26186728 (Version 1)
Quarter: 2025Q4

REPORT INFORMATION
  Report Type: Spontaneous
  Country: US (occurrence: US)
  Receive Date: 20251222
  Receipt Date: 20251222
  Transmission Date: 20260117
  Serious: No
  Sender: SANOFI AVENTIS
  Company Number: US-SA-2025SA378119

PATIENT
  Sex: Male

DRUGS (20)
  1. DUPIXENT [Suspect]
     Active Substance: DUPILUMAB
     Indication: Dermatitis atopic
     Dosage: 300 MG, QOW
     Route: 058
  2. CARVEDILOL [Concomitant]
     Active Substance: CARVEDILOL
  3. COSMETICS [Concomitant]
     Active Substance: COSMETICS
  4. DILTIAZEM [Concomitant]
     Active Substance: DILTIAZEM
  5. GABAPENTIN [Concomitant]
     Active Substance: GABAPENTIN
  6. MELOXICAM [Concomitant]
     Active Substance: MELOXICAM
  7. METFORMIN HYDROCHLORIDE [Concomitant]
     Active Substance: METFORMIN HYDROCHLORIDE
  8. TACROLIMUS [Concomitant]
     Active Substance: TACROLIMUS
  9. TAMSULOSIN [Concomitant]
     Active Substance: TAMSULOSIN
  10. TRIAMCINOLONE [Concomitant]
     Active Substance: TRIAMCINOLONE
  11. DILTIAZEM HYDROCHLORIDE [Concomitant]
     Active Substance: DILTIAZEM HYDROCHLORIDE
  12. MELOXICAM [Concomitant]
     Active Substance: MELOXICAM
  13. METHOCARBAMOL [Concomitant]
     Active Substance: METHOCARBAMOL
  14. ATORVASTATIN [Concomitant]
     Active Substance: ATORVASTATIN
  15. CEPHALEXIN [Concomitant]
     Active Substance: CEPHALEXIN
  16. FINASTERIDE [Concomitant]
     Active Substance: FINASTERIDE
  17. FOLIC ACID [Concomitant]
     Active Substance: FOLIC ACID
  18. HYDROCORTISONE [Concomitant]
     Active Substance: HYDROCORTISONE
  19. IRBESARTAN [Concomitant]
     Active Substance: IRBESARTAN
  20. TORSEMIDE [Concomitant]
     Active Substance: TORSEMIDE

REACTIONS (5)
  - Pruritus [Unknown]
  - Injection site pruritus [Recovered/Resolved]
  - Injection site erythema [Recovered/Resolved]
  - Injection site pain [Unknown]
  - Product preparation error [Unknown]
